FAERS Safety Report 10039198 (Version 1)
Quarter: 2014Q1

REPORT INFORMATION
  Report Type: Spontaneous
  Country: BR (occurrence: BR)
  Receive Date: 20140326
  Receipt Date: 20140326
  Transmission Date: 20141002
  Serious: Yes (Other)
  Sender: FDA-Public Use
  Company Number: BR-JNJFOC-20140308203

PATIENT
  Sex: Female
  Weight: 63 kg

DRUGS (4)
  1. TYLEX [Suspect]
     Indication: ANALGESIC THERAPY
     Route: 065
     Dates: start: 2004
  2. TOPIRAMATE [Concomitant]
     Indication: MIGRAINE
     Route: 065
  3. SEROQUEL [Concomitant]
     Indication: DEPRESSION
     Route: 065
  4. PURAN T4 [Concomitant]
     Indication: HYPOTHYROIDISM
     Route: 065

REACTIONS (7)
  - Depression [Not Recovered/Not Resolved]
  - Gallbladder operation [Recovered/Resolved]
  - Limb operation [Recovered/Resolved]
  - Hypothyroidism [Not Recovered/Not Resolved]
  - Migraine [Not Recovered/Not Resolved]
  - Abdominal pain [Recovered/Resolved]
  - Abdominal pain [Recovered/Resolved]
